FAERS Safety Report 8245013-7 (Version None)
Quarter: 2012Q1

REPORT INFORMATION
  Report Type: 
  Country: None (occurrence: None)
  Receive Date: 20120329
  Receipt Date: 20120322
  Transmission Date: 20120608
  Serious: Yes (Hospitalization)
  Sender: FDA-Public Use
  Company Number: US-US-EMD SERONO, INC.-7086417

PATIENT
  Sex: Male
  Weight: 85 kg

DRUGS (12)
  1. REYATAZ [Concomitant]
     Indication: HIV INFECTION
     Route: 048
     Dates: start: 20100101
  2. TESTOSTERONE CYPIONATE [Concomitant]
     Indication: HYPOGONADISM
     Route: 058
  3. EGRIFTA [Suspect]
     Indication: LIPODYSTROPHY ACQUIRED
     Route: 058
     Dates: start: 20110801
  4. DULOXETIME HYDROCHLORIDE [Concomitant]
     Indication: DEPRESSION
     Route: 048
  5. ESZOPICLONE [Concomitant]
     Indication: INSOMNIA
     Dosage: AT BEDTIME
     Route: 048
  6. NORVIR [Concomitant]
     Indication: HIV INFECTION
     Route: 048
     Dates: start: 20100101
  7. CLONAZEPAM [Concomitant]
     Indication: DEPRESSION
     Dosage: AT BEDTIME
     Route: 048
  8. DULOXETIME HYDROCHLORIDE [Concomitant]
     Indication: ANXIETY
  9. WELLBUTRIN SR [Concomitant]
     Indication: DEPRESSION
     Route: 048
  10. CLONAZEPAM [Concomitant]
     Indication: ANXIETY
  11. WELLBUTRIN SR [Concomitant]
     Indication: ANXIETY
  12. TRUVADA [Concomitant]
     Indication: HIV INFECTION
     Dosage: 200 MG-300MG
     Route: 048
     Dates: start: 20100101

REACTIONS (2)
  - GASTROENTERITIS [None]
  - DYSENTERY [None]
